FAERS Safety Report 23272232 (Version 1)
Quarter: 2023Q4

REPORT INFORMATION
  Report Type: Spontaneous
  Country: US (occurrence: US)
  Receive Date: 20231207
  Receipt Date: 20231207
  Transmission Date: 20240110
  Serious: No
  Sender: FDA-Public Use
  Company Number: US-BIOVITRUM-2023-US-019469

PATIENT
  Age: 15 Month
  Sex: Male
  Weight: 16.8 kg

DRUGS (2)
  1. SYNAGIS [Suspect]
     Active Substance: PALIVIZUMAB
     Indication: Heart disease congenital
     Dosage: 15MG/KG, ONCE A MONTH INTO THE MUSCLE
     Dates: start: 202310
  2. SYNAGIS [Suspect]
     Active Substance: PALIVIZUMAB
     Indication: Atrioventricular septal defect

REACTIONS (1)
  - Respiratory tract congestion [Unknown]
